FAERS Safety Report 18486626 (Version 3)
Quarter: 2020Q4

REPORT INFORMATION
  Report Type: Report from Study
  Country: US (occurrence: US)
  Receive Date: 20201110
  Receipt Date: 20201119
  Transmission Date: 20210114
  Serious: Yes (Death)
  Sender: FDA-Public Use
  Company Number: US-PFIZER INC-2020437734

PATIENT

DRUGS (2)
  1. GEMCITABINE HYDROCHLORIDE. [Suspect]
     Active Substance: GEMCITABINE HYDROCHLORIDE
     Dosage: 1000 MG/M2 WEEKLY FOR 3 WEEKS, FOLLOWED BY 1 WEEK REST, FOR FIVE ADDITIONAL 4-WEEK CYCLES
  2. GEMCITABINE HYDROCHLORIDE. [Suspect]
     Active Substance: GEMCITABINE HYDROCHLORIDE
     Indication: PANCREATIC CARCINOMA
     Dosage: 1000 MG/M2, WEEKLY (CYCLIC, OVER APPROXIMATELY 30 MINUTES) PER WEEK FOR 6 WEEKS
     Route: 042

REACTIONS (1)
  - Myocardial ischaemia [Fatal]
